FAERS Safety Report 5818371-8 (Version None)
Quarter: 2008Q3

REPORT INFORMATION
  Report Type: 
  Country: None (occurrence: None)
  Receive Date: 20080722
  Receipt Date: 20080711
  Transmission Date: 20090109
  Serious: Yes (Other)
  Sender: FDA-Public Use
  Company Number: DE-PFIZER INC-2008059032

PATIENT
  Sex: Male
  Weight: 51 kg

DRUGS (3)
  1. GENOTROPIN [Suspect]
     Indication: GROWTH HORMONE DEFICIENCY
     Dosage: DAILY DOSE:1.4MG-FREQ:DAILY
     Route: 058
  2. GENOTROPIN [Suspect]
     Route: 058
  3. BETAMETHASONE [Concomitant]
     Dosage: TEXT:0.05
     Dates: start: 19990408

REACTIONS (3)
  - AGGRESSION [None]
  - CRYING [None]
  - SCREAMING [None]
